FAERS Safety Report 17934597 (Version 1)
Quarter: 2020Q2

REPORT INFORMATION
  Report Type: Spontaneous
  Country: US (occurrence: US)
  Receive Date: 20200623
  Receipt Date: 20200623
  Transmission Date: 20200714
  Serious: Yes (Hospitalization)
  Sender: FDA-Public Use
  Company Number: None

PATIENT
  Age: 45 Year
  Sex: Male
  Weight: 67.5 kg

DRUGS (1)
  1. NIGHTIME COLD AND FLU [Suspect]
     Active Substance: ACETAMINOPHEN
     Indication: PULMONARY CONGESTION
     Dosage: ?          QUANTITY:1 30ML;?
     Route: 048
     Dates: start: 20200622, end: 20200622

REACTIONS (3)
  - Pain [None]
  - Burning sensation [None]
  - Vomiting [None]
